FAERS Safety Report 13458348 (Version 1)
Quarter: 2017Q2

REPORT INFORMATION
  Report Type: Spontaneous
  Country: US (occurrence: US)
  Receive Date: 20170419
  Receipt Date: 20170419
  Transmission Date: 20170830
  Serious: No
  Sender: FDA-Public Use
  Company Number: US-CELGENEUS-USA-20170403787

PATIENT
  Sex: Female

DRUGS (1)
  1. OTEZLA [Suspect]
     Active Substance: APREMILAST
     Indication: PSORIASIS
     Route: 048
     Dates: start: 20170405, end: 20170410

REACTIONS (4)
  - Nasopharyngitis [Unknown]
  - Diarrhoea [Unknown]
  - Respiratory tract infection [Unknown]
  - Productive cough [Unknown]
